FAERS Safety Report 7651245-9 (Version None)
Quarter: 2011Q3

REPORT INFORMATION
  Report Type: 
  Country: None (occurrence: None)
  Receive Date: 20110727
  Receipt Date: 20110711
  Transmission Date: 20111222
  Serious: Yes (Other)
  Sender: FDA-Public Use
  Company Number: COL_09309_2011

PATIENT
  Age: 24 Year
  Sex: Male

DRUGS (3)
  1. CHLORHEXIDINE GLUCONATE [Suspect]
     Indication: MUCOSAL INFLAMMATION
     Dosage: 1 DF 1X, ORAL
     Route: 048
  2. CHLORHEXIDINE GLUCONATE [Suspect]
     Indication: POSTOPERATIVE WOUND INFECTION
     Dosage: 1 DF 1X, ORAL
     Route: 048
  3. CHLORHEXIDINE GLUCONATE [Suspect]
     Indication: GINGIVITIS
     Dosage: 1 DF 1X, ORAL
     Route: 048

REACTIONS (2)
  - APTYALISM [None]
  - SWELLING FACE [None]
